FAERS Safety Report 6835631-2 (Version None)
Quarter: 2010Q3

REPORT INFORMATION
  Report Type: 
  Country: None (occurrence: None)
  Receive Date: 20100712
  Receipt Date: 20100712
  Transmission Date: 20110219
  Serious: Yes (Life-Threatening, Other)
  Sender: FDA-Public Use
  Company Number: None

PATIENT
  Age: 69 Year
  Sex: Female
  Weight: 72.5755 kg

DRUGS (2)
  1. BUPROPION HCL [Suspect]
     Indication: DEPRESSION
     Dosage: ONE DAILY PO
     Route: 048
     Dates: start: 20090401, end: 20100701
  2. BUPROPION HCL [Suspect]
     Indication: MOOD ALTERED
     Dosage: ONE DAILY PO
     Route: 048
     Dates: start: 20090401, end: 20100701

REACTIONS (4)
  - ANGER [None]
  - DEPRESSION [None]
  - FAMILY STRESS [None]
  - SCREAMING [None]
